FAERS Safety Report 6638006-4 (Version None)
Quarter: 2010Q1

REPORT INFORMATION
  Report Type: 
  Country: None (occurrence: None)
  Receive Date: 20100312
  Receipt Date: 20100225
  Transmission Date: 20100710
  Serious: Yes (Hospitalization, Other)
  Sender: FDA-Public Use
  Company Number: 1713747-2010-00005

PATIENT
  Sex: Male

DRUGS (2)
  1. DELFLEX W/ DEXTROSE 4.25% [Suspect]
     Indication: RENAL FAILURE CHRONIC
     Dosage: INTRAPERITONEALLY
     Route: 033
     Dates: start: 20100221
  2. DELFLEX W/ DEXTROSE 4.25% [Suspect]

REACTIONS (4)
  - MOBILITY DECREASED [None]
  - PAIN [None]
  - PERITONITIS [None]
  - UNEVALUABLE EVENT [None]
